FAERS Safety Report 6365482-7 (Version None)
Quarter: 2009Q3

REPORT INFORMATION
  Report Type: 
  Country: None (occurrence: None)
  Receive Date: 20090919
  Receipt Date: 20090821
  Transmission Date: 20100115
  Serious: No
  Sender: FDA-Public Use
  Company Number: US-ABBOTT-09P-163-0592614-00

PATIENT
  Sex: Male
  Weight: 92.616 kg

DRUGS (3)
  1. HUMIRA [Suspect]
     Indication: RHEUMATOID ARTHRITIS
     Dates: start: 20080820
  2. METHOTREXATE SODIUM [Concomitant]
     Indication: PAIN
     Dosage: 6 PILLS/WEEK
  3. METHOTREXATE SODIUM [Concomitant]
     Dosage: 1 EXTRA DAILY PER HOW BAD THE PAIN

REACTIONS (4)
  - BREAKTHROUGH PAIN [None]
  - DRUG EFFECT DECREASED [None]
  - MUSCULOSKELETAL STIFFNESS [None]
  - PAIN [None]
